FAERS Safety Report 10164203 (Version 1)
Quarter: 2014Q2

REPORT INFORMATION
  Report Type: Spontaneous
  Country: US (occurrence: US)
  Receive Date: 20140510
  Receipt Date: 20140510
  Transmission Date: 20141212
  Serious: No
  Sender: FDA-Public Use
  Company Number: US-BRISTOL-MYERS SQUIBB COMPANY-19982990

PATIENT
  Age: 62 Year
  Sex: Male
  Weight: 117.91 kg

DRUGS (3)
  1. BYETTA [Suspect]
     Indication: TYPE 2 DIABETES MELLITUS
     Dosage: 2S0MCG/ML
     Route: 058
     Dates: start: 20140103
  2. GLIPIZIDE [Concomitant]
     Route: 048
  3. TRADJENTA [Concomitant]
     Route: 048

REACTIONS (1)
  - Expired product administered [Unknown]
